FAERS Safety Report 25025065 (Version 1)
Quarter: 2025Q1

REPORT INFORMATION
  Report Type: Spontaneous
  Country: US (occurrence: None)
  Receive Date: 20250228
  Receipt Date: 20250228
  Transmission Date: 20250409
  Serious: Yes (Disabling, Other)
  Sender: FDA-CTU
  Company Number: None

PATIENT
  Age: 27 Year
  Sex: Female
  Weight: 65.7 kg

DRUGS (4)
  1. CAPLYTA [Suspect]
     Active Substance: LUMATEPERONE
     Indication: Bipolar disorder
     Route: 048
     Dates: start: 20220607, end: 20220607
  2. RISPERIDONE [Concomitant]
     Active Substance: RISPERIDONE
  3. LAMICTAL [Concomitant]
     Active Substance: LAMOTRIGINE
  4. VITAMIN D [Concomitant]
     Active Substance: VITAMIN D NOS

REACTIONS (8)
  - Dysarthria [None]
  - Movement disorder [None]
  - Brain fog [None]
  - Disturbance in social behaviour [None]
  - Photophobia [None]
  - Tremor [None]
  - Protrusion tongue [None]
  - Impaired quality of life [None]

NARRATIVE: CASE EVENT DATE: 20220607
